FAERS Safety Report 14011484 (Version 1)
Quarter: 2017Q3

REPORT INFORMATION
  Report Type: Spontaneous
  Country: US (occurrence: None)
  Receive Date: 20170926
  Receipt Date: 20170926
  Transmission Date: 20171128
  Serious: No
  Sender: FDA-Public Use
  Company Number: None

PATIENT
  Sex: Female
  Weight: 122.47 kg

DRUGS (1)
  1. TALTZ [Suspect]
     Active Substance: IXEKIZUMAB
     Indication: RHEUMATOID ARTHRITIS
     Dosage: 80MG  Q4WKS SQ
     Route: 058
     Dates: start: 201705

REACTIONS (1)
  - Malaise [None]
